APPROVED DRUG PRODUCT: FLECAINIDE ACETATE
Active Ingredient: FLECAINIDE ACETATE
Strength: 50MG
Dosage Form/Route: TABLET;ORAL
Application: A075442 | Product #001 | TE Code: AB
Applicant: AMNEAL PHARMACEUTICAL
Approved: Jul 31, 2001 | RLD: No | RS: No | Type: RX